FAERS Safety Report 9903120 (Version 1)
Quarter: 2014Q1

REPORT INFORMATION
  Report Type: Report from Study
  Country: IT (occurrence: IT)
  Receive Date: 20140217
  Receipt Date: 20140217
  Transmission Date: 20141002
  Serious: Yes (Hospitalization, Other)
  Sender: FDA-Public Use
  Company Number: PHHY2014IT018208

PATIENT
  Age: 39 Year
  Sex: Female

DRUGS (4)
  1. CERTICAN [Suspect]
     Indication: PROPHYLAXIS AGAINST TRANSPLANT REJECTION
     Dosage: 0.5 MG (0.25 PLUS 0.25)
     Route: 048
  2. ATENOLOL [Suspect]
     Dosage: 50 MG, UNK
     Route: 048
  3. SANDIMMUN NEORAL [Concomitant]
     Indication: PROPHYLAXIS AGAINST TRANSPLANT REJECTION
     Dosage: 50 PLUS 75 MG/DAY
  4. DELTACORTENE [Concomitant]
     Indication: PROPHYLAXIS AGAINST TRANSPLANT REJECTION
     Dosage: 2.5 MG, UNK

REACTIONS (8)
  - Palpitations [Recovered/Resolved]
  - Dyspnoea [Recovered/Resolved]
  - Mitral valve incompetence [Recovered/Resolved]
  - Aortic valve incompetence [Recovered/Resolved]
  - Sinus arrhythmia [Recovered/Resolved]
  - Electrocardiogram repolarisation abnormality [Recovered/Resolved]
  - Left ventricular end-diastolic pressure increased [Recovered/Resolved]
  - Haemoglobin decreased [Recovered/Resolved]
